FAERS Safety Report 5769438-4 (Version None)
Quarter: 2008Q2

REPORT INFORMATION
  Report Type: 
  Country: None (occurrence: None)
  Receive Date: 20080612
  Receipt Date: 20080401
  Transmission Date: 20081010
  Serious: No
  Sender: FDA-Public Use
  Company Number: US-ABBOTT-08P-163-0444790-00

PATIENT
  Sex: Female

DRUGS (5)
  1. HUMIRA [Suspect]
     Indication: CROHN'S DISEASE
     Route: 058
     Dates: start: 20080101, end: 20080401
  2. HUMIRA [Suspect]
     Route: 058
     Dates: start: 20080401
  3. ACETAMINOPHEN [Concomitant]
     Indication: DRUG USE FOR UNKNOWN INDICATION
     Route: 048
  4. BUDESONIDE [Concomitant]
     Indication: CROHN'S DISEASE
     Route: 048
  5. BALSALAZIDE DISODIUM [Concomitant]
     Indication: CROHN'S DISEASE
     Route: 048

REACTIONS (3)
  - FREQUENT BOWEL MOVEMENTS [None]
  - HEADACHE [None]
  - RASH [None]
